FAERS Safety Report 11645488 (Version 2)
Quarter: 2015Q4

REPORT INFORMATION
  Report Type: Spontaneous
  Country: US (occurrence: US)
  Receive Date: 20151020
  Receipt Date: 20151102
  Transmission Date: 20160304
  Serious: No
  Sender: FDA-Public Use
  Company Number: US-BAYER-2015-444852

PATIENT
  Age: 86 Year
  Sex: Female
  Weight: 80.73 kg

DRUGS (7)
  1. ALEVE [Suspect]
     Active Substance: NAPROXEN SODIUM
     Indication: EYE PAIN
     Dosage: 3 DF, QD (TOOK 2 ALEVE TO START AND THEN 1 MORE LATER)
     Route: 048
  2. BAYER LOW DOSE [Suspect]
     Active Substance: ASPIRIN
     Indication: COAGULOPATHY
     Dosage: 3-4 DF QD, QD
     Route: 048
  3. ALEVE [Suspect]
     Active Substance: NAPROXEN SODIUM
     Indication: SCIATICA
  4. ALEVE [Suspect]
     Active Substance: NAPROXEN SODIUM
     Indication: FIBROMYALGIA
  5. ALEVE [Suspect]
     Active Substance: NAPROXEN SODIUM
     Indication: ARTHRITIS
  6. BENADRYL [Concomitant]
     Active Substance: DIPHENHYDRAMINE HYDROCHLORIDE
  7. NEOSPORIN [METHOXAMINE HYDROCHLORIDE,NEOMYCIN SULFATE,POLYMYXIN B [Concomitant]

REACTIONS (5)
  - Pain of skin [None]
  - Blister [Not Recovered/Not Resolved]
  - Product use issue [None]
  - Off label use [None]
  - Rash vesicular [None]
